FAERS Safety Report 19960344 (Version 4)
Quarter: 2022Q2

REPORT INFORMATION
  Report Type: Spontaneous
  Country: US (occurrence: US)
  Receive Date: 20211015
  Receipt Date: 20220531
  Transmission Date: 20220720
  Serious: No
  Sender: FDA-Public Use
  Company Number: US-PFIZER INC-202101224004

PATIENT
  Age: 14 Year
  Sex: Male

DRUGS (2)
  1. GENOTROPIN [Suspect]
     Active Substance: SOMATROPIN
     Dosage: 2.6 MG, DAILY
  2. GENOTROPIN [Suspect]
     Active Substance: SOMATROPIN
     Dosage: 2.8 MG, DAILY
     Dates: start: 202104

REACTIONS (4)
  - Drug dose omission by device [Unknown]
  - Device mechanical issue [Unknown]
  - Device leakage [Unknown]
  - Device defective [Unknown]
